FAERS Safety Report 22381283 (Version 2)
Quarter: 2023Q2

REPORT INFORMATION
  Report Type: Spontaneous
  Country: JP (occurrence: JP)
  Receive Date: 20230530
  Receipt Date: 20230628
  Transmission Date: 20230721
  Serious: Yes (Other)
  Sender: FDA-Public Use
  Company Number: JP-SA-2023SA157437

PATIENT
  Age: 40 Year
  Sex: Male

DRUGS (16)
  1. INSULIN ASPART [Suspect]
     Active Substance: INSULIN ASPART
     Indication: Diabetes mellitus
     Dosage: 10 IU, TID (BEFORE EACH MEAL)
     Route: 042
  2. INSULIN ASPART [Suspect]
     Active Substance: INSULIN ASPART
     Indication: Diabetic ketoacidosis
     Dosage: TAPERED
     Route: 042
  3. INSULIN ASPART [Suspect]
     Active Substance: INSULIN ASPART
     Dosage: 4 IU
     Route: 042
  4. INSULIN ASPART [Suspect]
     Active Substance: INSULIN ASPART
     Dosage: 2 IU
     Route: 042
  5. INSULIN GLARGINE [Suspect]
     Active Substance: INSULIN GLARGINE
     Indication: Diabetes mellitus
     Dosage: UNK
     Route: 042
  6. INSULIN GLARGINE [Suspect]
     Active Substance: INSULIN GLARGINE
     Indication: Diabetic ketoacidosis
     Dosage: 7 IU (AFTER DIAGNOSIS OF DIABETIC KETOACIDOSIS )
     Route: 042
  7. INSULIN HUMAN NOS [Suspect]
     Active Substance: INSULIN HUMAN
     Indication: Diabetic ketoacidosis
     Dosage: 4.0 IU, QH
     Route: 042
  8. INSULIN HUMAN NOS [Suspect]
     Active Substance: INSULIN HUMAN
     Dosage: 4.6 IU, QH
     Route: 042
  9. INSULIN HUMAN NOS [Suspect]
     Active Substance: INSULIN HUMAN
     Dosage: 2.0 IU, QH
     Route: 042
  10. INSULIN DEGLUDEC [Suspect]
     Active Substance: INSULIN DEGLUDEC
     Indication: Diabetes mellitus
     Dosage: 14 IU, QD
     Route: 042
  11. INSULIN DEGLUDEC [Suspect]
     Active Substance: INSULIN DEGLUDEC
     Indication: Diabetic ketoacidosis
     Dosage: 10 IU, QD
     Route: 042
  12. LIXISENATIDE [Concomitant]
     Active Substance: LIXISENATIDE
     Indication: Hypoglycaemia
     Dosage: UNK
     Route: 065
  13. LIXISENATIDE [Concomitant]
     Active Substance: LIXISENATIDE
     Dosage: 7 UG (AFTR DIAGNOSIS OF DIABETIC KETOACIDOSIS)
     Route: 065
  14. PREDNISOLONE [Concomitant]
     Active Substance: PREDNISOLONE
     Indication: Asthma
     Dosage: 30 MG
     Route: 065
  15. SODIUM BICARBONATE [Concomitant]
     Active Substance: SODIUM BICARBONATE
     Indication: Hyperkalaemia
     Dosage: 7% SODIUM BICARBONATE 250 ML
     Route: 065
  16. SODIUM BICARBONATE [Concomitant]
     Active Substance: SODIUM BICARBONATE
     Indication: Acidosis

REACTIONS (1)
  - Lactic acidosis [Recovering/Resolving]
